FAERS Safety Report 9022463 (Version 1)
Quarter: 2013Q1

REPORT INFORMATION
  Report Type: Spontaneous
  Country: US (occurrence: US)
  Receive Date: 20130118
  Receipt Date: 20130118
  Transmission Date: 20140127
  Serious: No
  Sender: FDA-Public Use
  Company Number: US-PFIZER INC-2013018507

PATIENT
  Age: 75 Year
  Sex: Female

DRUGS (1)
  1. ADVIL [Suspect]
     Dosage: UNK, 1X/DAY
     Route: 048
     Dates: start: 20130112, end: 20130112

REACTIONS (1)
  - Dizziness [Recovered/Resolved]
